FAERS Safety Report 6626714-0 (Version None)
Quarter: 2010Q1

REPORT INFORMATION
  Report Type: 
  Country: None (occurrence: None)
  Receive Date: 20100308
  Receipt Date: 20100226
  Transmission Date: 20100710
  Serious: Yes (Death, Life-Threatening, Hospitalization)
  Sender: FDA-Public Use
  Company Number: SPV1-2010-00333

PATIENT
  Age: 80 Year
  Sex: Female

DRUGS (7)
  1. XAGRID        (ANAGRELIDE HYDROCHLORIDE) CAPSULE [Suspect]
     Indication: ESSENTIAL THROMBOCYTHAEMIA
     Dosage: 0.5 MG, 2X/DAY:BID, ORAL
     Route: 048
     Dates: start: 20091014, end: 20091217
  2. KARDEGIC            /00002703/ (ACETYLSALICYLATE LYSINE) [Concomitant]
  3. POTASSIUM CHLORIDE [Concomitant]
  4. NOCTAMIDE    (LORMETAZEPAM) [Concomitant]
  5. LERCANIDIPINE [Concomitant]
  6. LASILIX         /00032601/ (FUROSEMIDE) [Concomitant]
  7. SACHET [Concomitant]

REACTIONS (12)
  - ALTERED STATE OF CONSCIOUSNESS [None]
  - DISTURBANCE IN ATTENTION [None]
  - FALL [None]
  - HYPERCAPNIA [None]
  - HYPERNATRAEMIA [None]
  - HYPOVENTILATION [None]
  - LEFT VENTRICULAR FAILURE [None]
  - PSEUDOMONAS INFECTION [None]
  - SCLERODERMA [None]
  - SKIN ULCER [None]
  - TACHYPNOEA [None]
  - TELANGIECTASIA [None]
